FAERS Safety Report 6106729-1 (Version None)
Quarter: 2009Q1

REPORT INFORMATION
  Report Type: 
  Country: None (occurrence: None)
  Receive Date: 20090302
  Receipt Date: 20090217
  Transmission Date: 20090719
  Serious: Yes (Other)
  Sender: FDA-Public Use
  Company Number: GXKR2009IL02048

PATIENT
  Age: 38 Year
  Sex: Female

DRUGS (3)
  1. AMOXICILLIN [Suspect]
  2. ACETAMINOPHEN [Suspect]
  3. DIPYRONE INJ [Suspect]

REACTIONS (1)
  - ACUTE FEBRILE NEUTROPHILIC DERMATOSIS [None]
